FAERS Safety Report 14992391 (Version 1)
Quarter: 2018Q2

REPORT INFORMATION
  Report Type: Spontaneous
  Country: DE (occurrence: DE)
  Receive Date: 20180609
  Receipt Date: 20180609
  Transmission Date: 20180711
  Serious: Yes (Hospitalization)
  Sender: FDA-Public Use
  Company Number: DE-TEVA-2018-DE-903361

PATIENT
  Age: 52 Year
  Sex: Male
  Weight: 67 kg

DRUGS (19)
  1. IRINOTECAN [Suspect]
     Active Substance: IRINOTECAN
     Dosage: BY SCHEME, INJECTION/INFUSION SOLUTION
     Route: 042
  2. BUPRENORPHINE. [Concomitant]
     Active Substance: BUPRENORPHINE
     Dosage: SCHEMA, PLASTER TRANSDERMAL
     Route: 062
  3. MOVICOL [Concomitant]
     Active Substance: POLYETHYLENE GLYCOL 3350\POTASSIUM CHLORIDE\SODIUM BICARBONATE\SODIUM CHLORIDE
     Dosage: NEED, POUCH
     Route: 048
  4. NOVALGIN (METAMIZOLE SODIUM) [Concomitant]
     Active Substance: METAMIZOLE SODIUM
     Dosage: 1-1-1-1, DROP
     Route: 048
  5. METOCLOPRAMIDE. [Concomitant]
     Active Substance: METOCLOPRAMIDE
     Dosage: 10 MG, NEED
     Route: 048
  6. LOPERAMIDE [Concomitant]
     Active Substance: LOPERAMIDE
     Dosage: 2 MG, NEED,
     Route: 048
  7. DENOSUMAB [Concomitant]
     Active Substance: DENOSUMAB
     Dosage: SCHEMA, INJECTION/INFUSION SOLUTION
     Route: 058
  8. SAB SIMPLEX SUSPENSION ZUM EINNEHMEN [Concomitant]
     Dosage: 1-1-1-0, SUSPENSION
     Route: 048
  9. TEMGESIC [Concomitant]
     Active Substance: BUPRENORPHINE HYDROCHLORIDE
     Dosage: NEED, MELTING TABLETS
     Route: 048
  10. LEUCOVORIN. [Suspect]
     Active Substance: LEUCOVORIN
     Dosage: BY SCHEME, INJECTION/INFUSION SOLUTION
     Route: 042
  11. CALCIMAGON-D3 [Concomitant]
     Active Substance: CALCIUM\CHOLECALCIFEROL
     Dosage: 1-0-0-0,
     Route: 048
  12. DEXAMETHASONE. [Concomitant]
     Active Substance: DEXAMETHASONE
     Dosage: 1-0-1-0
     Route: 048
  13. ELIQUIS [Concomitant]
     Active Substance: APIXABAN
     Dosage: 1-0-1-0
     Route: 048
  14. KREON 40000 [Concomitant]
     Active Substance: PANCRELIPASE
     Dosage: 40000 IE, 1-1-1-0, GASTRIC JUICE RESISTANT PELLETS
     Route: 048
  15. PANTOZOL [Concomitant]
     Active Substance: PANTOPRAZOLE SODIUM
     Dosage: 1-0-0-0,
     Route: 048
  16. KALIUM [Concomitant]
     Active Substance: POTASSIUM CHLORIDE
     Dosage: 8 MVAL, 1-0-1-0, CAPSULES
     Route: 048
  17. PREDNISOLONE. [Concomitant]
     Active Substance: PREDNISOLONE
     Dosage: 1X ON DEMAND, TABLETS
     Route: 048
  18. FLUOROURACIL. [Suspect]
     Active Substance: FLUOROURACIL
     Dosage: SCHEME, INJECTION/INFUSION SOLUTION
     Route: 042
  19. ONDANSETRON [Concomitant]
     Active Substance: ONDANSETRON
     Dosage: 1-0-1,
     Route: 048

REACTIONS (3)
  - Hypotension [Unknown]
  - Haematochezia [Unknown]
  - Diarrhoea [Unknown]
